FAERS Safety Report 4383119-3 (Version None)
Quarter: 2004Q2

REPORT INFORMATION
  Report Type: 
  Country: None (occurrence: None)
  Receive Date: 20040618
  Receipt Date: 20040528
  Transmission Date: 20050107
  Serious: Yes (Hospitalization)
  Sender: FDA-Public Use
  Company Number: EWC040639478

PATIENT
  Age: 80 Year
  Sex: Male

DRUGS (6)
  1. PERMAX [Suspect]
     Indication: PARKINSON'S DISEASE
     Dosage: 1 MG/4 DAY
     Dates: start: 19990101
  2. SINTROM MITIS(ACENOCOUMAROL) [Concomitant]
  3. SELOKEEN(METOPROLOL TARTRATE) [Concomitant]
  4. ENALAPRIL MALEATE [Concomitant]
  5. SINEMET [Concomitant]
  6. FUROSEMIDE [Concomitant]

REACTIONS (7)
  - ANAEMIA [None]
  - HYDRONEPHROSIS [None]
  - LABORATORY TEST ABNORMAL [None]
  - OEDEMA PERIPHERAL [None]
  - RED BLOOD CELL SEDIMENTATION RATE INCREASED [None]
  - RETROPERITONEAL FIBROSIS [None]
  - URETERIC OBSTRUCTION [None]
